FAERS Safety Report 9569917 (Version 5)
Quarter: 2014Q2

REPORT INFORMATION
  Report Type: Spontaneous
  Country: US (occurrence: US)
  Receive Date: 20130930
  Receipt Date: 20140602
  Transmission Date: 20141212
  Serious: No
  Sender: FDA-Public Use
  Company Number: US-AMGEN-USASP2013065071

PATIENT
  Age: 29 Year
  Sex: Female

DRUGS (6)
  1. ENBREL [Suspect]
     Indication: RHEUMATOID ARTHRITIS
     Dosage: 50MG WEEKLY
     Route: 058
     Dates: start: 20120823
  2. PLAQUENIL                          /00072602/ [Concomitant]
     Dosage: 200 MG, BID
     Route: 048
     Dates: start: 20130319
  3. PRENATAL                           /00231801/ [Concomitant]
     Dosage: 2 TABLETS TID
     Route: 048
     Dates: start: 20111101
  4. VIT D [Concomitant]
     Dosage: 10000 IU, QD
     Route: 048
     Dates: start: 201112
  5. PROBIOTICS                         /07325001/ [Concomitant]
     Dosage: 1 TABLET QD
     Route: 048
  6. OMEGA 3                            /01333901/ [Concomitant]
     Dosage: 2000 MG, BID
     Route: 048
     Dates: start: 2010

REACTIONS (7)
  - Contusion [Not Recovered/Not Resolved]
  - Suppressed lactation [Not Recovered/Not Resolved]
  - Frustration [Not Recovered/Not Resolved]
  - Injection site pruritus [Not Recovered/Not Resolved]
  - Injection site rash [Unknown]
  - Injection site urticaria [Not Recovered/Not Resolved]
  - Sinusitis [Unknown]
